FAERS Safety Report 5024164-4 (Version None)
Quarter: 2006Q2

REPORT INFORMATION
  Report Type: 
  Country: None (occurrence: None)
  Receive Date: 20060607
  Receipt Date: 20060518
  Transmission Date: 20061013
  Serious: Yes (Hospitalization)
  Sender: FDA-Public Use
  Company Number: US200605004182

PATIENT
  Age: 58 Year
  Sex: Female

DRUGS (1)
  1. HUMALOG [Suspect]
     Indication: DIABETES MELLITUS
     Dosage: SUB, PUMP

REACTIONS (2)
  - STAPHYLOCOCCAL INFECTION [None]
  - SURGERY [None]
